FAERS Safety Report 16937639 (Version 6)
Quarter: 2024Q4

REPORT INFORMATION
  Report Type: Report from Study
  Country: US (occurrence: US)
  Receive Date: 20191019
  Receipt Date: 20241011
  Transmission Date: 20250115
  Serious: Yes (Hospitalization, Other)
  Sender: TAKEDA
  Company Number: US-TAKEDA-2018TUS036874

PATIENT
  Sex: Female

DRUGS (5)
  1. PONATINIB [Suspect]
     Active Substance: PONATINIB
     Indication: Chronic myeloid leukaemia
     Dosage: 45 MILLIGRAM, QD
     Route: 048
     Dates: start: 20181215
  2. PONATINIB [Suspect]
     Active Substance: PONATINIB
     Dosage: 30 MILLIGRAM, QD
     Route: 048
     Dates: start: 201901
  3. PONATINIB [Suspect]
     Active Substance: PONATINIB
     Dosage: 30 MILLIGRAM, QD
     Route: 048
  4. PONATINIB [Suspect]
     Active Substance: PONATINIB
     Dosage: 30 MILLIGRAM, QD
     Route: 048
  5. PONATINIB [Suspect]
     Active Substance: PONATINIB
     Dosage: 30 MILLIGRAM, QD
     Route: 048

REACTIONS (18)
  - Cystitis haemorrhagic [Unknown]
  - Skin disorder [Unknown]
  - Skin burning sensation [Unknown]
  - Skin exfoliation [Unknown]
  - Thrombocytopenia [Unknown]
  - Anaemia [Unknown]
  - Platelet count increased [Unknown]
  - Product use issue [Unknown]
  - Product dose omission issue [Unknown]
  - Abdominal distension [Unknown]
  - Bone pain [Unknown]
  - Dry skin [Unknown]
  - Headache [Unknown]
  - Abdominal pain [Unknown]
  - Pain [Unknown]
  - Rash [Recovering/Resolving]
  - Erythema [Unknown]
  - Constipation [Unknown]
